FAERS Safety Report 19871206 (Version 1)
Quarter: 2021Q3

REPORT INFORMATION
  Report Type: Spontaneous
  Country: US (occurrence: US)
  Receive Date: 20210923
  Receipt Date: 20210923
  Transmission Date: 20211014
  Serious: Yes (Other)
  Sender: FDA-Public Use
  Company Number: US-DRREDDYS-LIT/USA/21/0140403

PATIENT
  Age: 22 Year
  Sex: Female

DRUGS (5)
  1. ZIPRASIDONE. [Suspect]
     Active Substance: ZIPRASIDONE
     Indication: POST-TRAUMATIC STRESS DISORDER
  2. ARIPIPRAZOLE. [Suspect]
     Active Substance: ARIPIPRAZOLE
     Indication: POST-TRAUMATIC STRESS DISORDER
  3. RISPERIDONE. [Suspect]
     Active Substance: RISPERIDONE
     Indication: POST-TRAUMATIC STRESS DISORDER
  4. ILOPERIDONE. [Suspect]
     Active Substance: ILOPERIDONE
     Indication: POST-TRAUMATIC STRESS DISORDER
  5. RISPERIDONE. [Suspect]
     Active Substance: RISPERIDONE
     Dosage: RE?INITIATED

REACTIONS (2)
  - Hyperprolactinaemia [Recovered/Resolved]
  - Drug ineffective [Unknown]
